FAERS Safety Report 9091525 (Version 1)
Quarter: 2013Q1

REPORT INFORMATION
  Report Type: Report from Study
  Country: CA (occurrence: CA)
  Receive Date: 20130131
  Receipt Date: 20130131
  Transmission Date: 20140127
  Serious: Yes (Other)
  Sender: FDA-Public Use
  Company Number: CA-JNJFOC-20130112104

PATIENT
  Age: 58 Year
  Sex: Female
  Weight: 110 kg

DRUGS (2)
  1. REMICADE [Suspect]
     Indication: CROHN^S DISEASE
     Route: 042
  2. PREDNISONE [Concomitant]
     Dosage: PREDNISONE STOPPED DATE REPORTED AS 04-01-2016 (FUTURE DATE)
     Route: 065
     Dates: end: 20130103

REACTIONS (1)
  - Arthritis [Not Recovered/Not Resolved]
